FAERS Safety Report 14167215 (Version 5)
Quarter: 2018Q1

REPORT INFORMATION
  Report Type: Report from Study
  Country: None (occurrence: JP)
  Receive Date: 20171108
  Receipt Date: 20180105
  Transmission Date: 20180508
  Serious: Yes (Other)
  Sender: FDA-Public Use
  Company Number: JP-ABBVIE-14K-087-1262997-00

PATIENT
  Age: 62 Year
  Sex: Male
  Weight: 75 kg

DRUGS (38)
  1. HUMIRA [Suspect]
     Active Substance: ADALIMUMAB
     Indication: RHEUMATOID ARTHRITIS
     Route: 058
     Dates: start: 20130401, end: 20130904
  2. METOLATE [Suspect]
     Active Substance: METHOTREXATE
     Dosage: 10 MG/WEEK
     Route: 048
     Dates: start: 20130617, end: 20130914
  3. PREDONIN [Concomitant]
     Active Substance: PREDNISOLONE
     Indication: RHEUMATOID ARTHRITIS
     Route: 048
     Dates: start: 20130212
  4. PREDONIN [Concomitant]
     Active Substance: PREDNISOLONE
     Route: 048
     Dates: start: 20130520, end: 20130710
  5. L-CARNITINE [Concomitant]
     Active Substance: LEVOCARNITINE
     Indication: MUSCLE SPASMS
     Route: 048
  6. DEXAMETHASONE SODIUM PHOSPHATE. [Concomitant]
     Active Substance: DEXAMETHASONE SODIUM PHOSPHATE
     Indication: TENOSYNOVITIS
     Dosage: ADMINISTERED ONLY ON APPLICABLE DAYS
     Route: 014
     Dates: start: 20130219
  7. LEVOCARNITINE. [Concomitant]
     Active Substance: LEVOCARNITINE
     Indication: PRODUCT USED FOR UNKNOWN INDICATION
     Dates: start: 20130710
  8. METHOTREXATE. [Concomitant]
     Active Substance: METHOTREXATE
     Indication: PRODUCT USED FOR UNKNOWN INDICATION
     Dosage: 6 MG/WEEK
     Dates: end: 20130219
  9. PREDONIN [Concomitant]
     Active Substance: PREDNISOLONE
     Route: 048
     Dates: start: 20130221
  10. ESOMEPRAZOLE MAGNESIUM HYDRATE [Concomitant]
     Active Substance: ESOMEPRAZOLE MAGNESIUM
     Indication: PROPHYLAXIS AGAINST GASTROINTESTINAL ULCER
     Route: 048
  11. FOLIC ACID. [Concomitant]
     Active Substance: FOLIC ACID
     Indication: PROPHYLAXIS
     Route: 048
     Dates: start: 20130401, end: 20160303
  12. DEXAMETHASONE PALMITATE [Concomitant]
     Active Substance: DEXAMETHASONE
     Indication: PRODUCT USED FOR UNKNOWN INDICATION
     Dosage: ADMINISTERED ON APPLICABLE DAYS
     Route: 042
     Dates: start: 20130212
  13. ISONIAZID. [Concomitant]
     Active Substance: ISONIAZID
     Indication: ANTIBIOTIC PROPHYLAXIS
     Route: 048
     Dates: start: 20130401
  14. ISONIAZID. [Concomitant]
     Active Substance: ISONIAZID
     Route: 048
     Dates: start: 20130710
  15. PYRIDOXAL PHOSPHATE HYDRATE [Concomitant]
     Indication: PROPHYLAXIS
     Route: 048
     Dates: start: 20130401
  16. METOLATE [Suspect]
     Active Substance: METHOTREXATE
     Dosage: ON TUESDAY, 4 MG AFTER BREAKFAST
     Route: 048
     Dates: start: 20130301, end: 20130611
  17. PREDONIN [Concomitant]
     Active Substance: PREDNISOLONE
     Route: 048
     Dates: start: 20130318, end: 2013
  18. DEXAMETHASONE SODIUM PHOSPHATE. [Concomitant]
     Active Substance: DEXAMETHASONE SODIUM PHOSPHATE
     Indication: OSTEOARTHRITIS
     Dosage: 1.65 MG TO THE LEFT SHOULDER AND 1.65 MG TO THE KNEES
     Route: 014
     Dates: start: 20131114
  19. METHOTREXATE. [Concomitant]
     Active Substance: METHOTREXATE
     Dosage: 10 MG/WEEK
     Dates: start: 20130219, end: 20130301
  20. PREDONIN [Concomitant]
     Active Substance: PREDNISOLONE
     Dates: start: 20160303, end: 20160303
  21. AZITHROMYCIN HYDRATE [Concomitant]
     Active Substance: AZITHROMYCIN DIHYDRATE
     Indication: UPPER RESPIRATORY TRACT INFLAMMATION
     Route: 048
     Dates: start: 20130807
  22. PYRIDOXAL PHOSPHATE HYDRATE [Concomitant]
     Route: 048
     Dates: start: 20130710
  23. PREDONIN [Concomitant]
     Active Substance: PREDNISOLONE
     Route: 048
     Dates: start: 20130219
  24. OLMESARTAN MEDOXOMIL. [Concomitant]
     Active Substance: OLMESARTAN MEDOXOMIL
     Indication: PRODUCT USED FOR UNKNOWN INDICATION
     Route: 048
  25. LOXOPROFEN SODIUM HYDRATE [Concomitant]
     Active Substance: LOXOPROFEN SODIUM DIHYDRATE
     Indication: RHEUMATOID ARTHRITIS
     Route: 061
  26. DEXAMETHASONE SODIUM PHOSPHATE. [Concomitant]
     Active Substance: DEXAMETHASONE SODIUM PHOSPHATE
     Route: 014
     Dates: start: 20141220
  27. DEXAMETHASONE PALMITATE [Concomitant]
     Active Substance: DEXAMETHASONE
     Dosage: ADMINISTERED ON APPLICABLE DAYS
     Route: 042
     Dates: start: 20130301
  28. METHOTREXATE. [Concomitant]
     Active Substance: METHOTREXATE
     Dosage: 14 MG/WEEK
     Dates: start: 20130301, end: 20130611
  29. METHOTREXATE. [Concomitant]
     Active Substance: METHOTREXATE
     Dosage: 8 MG/WEEK
     Dates: start: 20130918
  30. HUMIRA [Suspect]
     Active Substance: ADALIMUMAB
     Route: 058
     Dates: start: 20131002, end: 20131114
  31. METOLATE [Suspect]
     Active Substance: METHOTREXATE
     Indication: RHEUMATOID ARTHRITIS
     Dosage: 10 MG/WEEK
     Route: 048
     Dates: start: 20130219, end: 20130301
  32. METOLATE [Suspect]
     Active Substance: METHOTREXATE
     Dosage: ON MONDAY, 6 MG AFTER BREAKFAST AND 4 MG AFTER SUPPER
     Route: 048
     Dates: start: 20130301, end: 20130611
  33. PREDONIN [Concomitant]
     Active Substance: PREDNISOLONE
     Route: 048
     Dates: start: 20130401, end: 20130520
  34. METHOTREXATE. [Concomitant]
     Active Substance: METHOTREXATE
     Dosage: 10 MG/WEEK
     Dates: start: 20130617, end: 20130904
  35. METOLATE [Suspect]
     Active Substance: METHOTREXATE
     Dosage: 8 MG/WEEK
     Route: 048
     Dates: start: 20130918, end: 20140122
  36. PREDNISOLONE. [Concomitant]
     Active Substance: PREDNISOLONE
     Indication: RHEUMATOID ARTHRITIS
     Route: 048
     Dates: start: 20130710, end: 20130904
  37. L-CARNITINE [Concomitant]
     Active Substance: LEVOCARNITINE
     Indication: PROPHYLAXIS
  38. DEXAMETHASONE SODIUM PHOSPHATE. [Concomitant]
     Active Substance: DEXAMETHASONE SODIUM PHOSPHATE
     Indication: PERIARTHRITIS
     Dosage: ADMINISTERED ONLY ON APPLICABLE DAYS
     Route: 014
     Dates: start: 20130301

REACTIONS (12)
  - Pruritus [Recovered/Resolved]
  - Hepatic function abnormal [Unknown]
  - Renal impairment [Recovering/Resolving]
  - Rash [Recovering/Resolving]
  - Urticaria [Recovering/Resolving]
  - Periarthritis [Recovered/Resolved]
  - Osteoarthritis [Unknown]
  - Rash [Recovering/Resolving]
  - Urticaria [Recovering/Resolving]
  - Joint swelling [Recovering/Resolving]
  - Blood beta-D-glucan increased [Recovered/Resolved]
  - Upper respiratory tract inflammation [Recovered/Resolved]

NARRATIVE: CASE EVENT DATE: 20130520
